FAERS Safety Report 6782583-X (Version None)
Quarter: 2010Q2

REPORT INFORMATION
  Report Type: 
  Country: None (occurrence: None)
  Receive Date: 20100621
  Receipt Date: 20100611
  Transmission Date: 20101027
  Serious: Yes (Other)
  Sender: FDA-Public Use
  Company Number: US-MPIJNJ-2010-02895

PATIENT

DRUGS (1)
  1. VELCADE [Suspect]
     Indication: LYMPHOMA

REACTIONS (2)
  - CERVICOBRACHIAL SYNDROME [None]
  - HERPES ZOSTER [None]
